FAERS Safety Report 8246575-6 (Version None)
Quarter: 2012Q1

REPORT INFORMATION
  Report Type: 
  Country: None (occurrence: None)
  Receive Date: 20120330
  Receipt Date: 20120323
  Transmission Date: 20120608
  Serious: Yes (Other)
  Sender: FDA-Public Use
  Company Number: PHHY2012MX026126

PATIENT
  Sex: Female

DRUGS (7)
  1. LEVODOPA [Concomitant]
     Dosage: UNK UKN, UNK
     Dates: start: 20000301
  2. CALCITRIOL [Concomitant]
     Dosage: UNK UKN, BID
     Dates: start: 20070301
  3. ZOLEDRONOC ACID [Suspect]
     Indication: OSTEOPOROSIS
     Dosage: 5 MG, UNK
     Route: 042
     Dates: start: 20110323
  4. BIPERIDEN HYDROCHLORIDE TAB [Concomitant]
     Dosage: UNK UKN, TID
     Dates: start: 20000301
  5. LYRICA [Concomitant]
     Dosage: UNK UKN, BID
     Dates: start: 20120201
  6. DICLOFENAC SODIUM [Concomitant]
     Dosage: UNK UKN, QD
     Dates: start: 20110301
  7. CALCIUM CARBONATE [Concomitant]
     Dosage: UNK UKN, QD
     Dates: start: 20100501

REACTIONS (4)
  - WRIST FRACTURE [None]
  - CEREBROVASCULAR ACCIDENT [None]
  - HIP FRACTURE [None]
  - UPPER LIMB FRACTURE [None]
